FAERS Safety Report 8294223-1 (Version None)
Quarter: 2012Q2

REPORT INFORMATION
  Report Type: 
  Country: None (occurrence: None)
  Receive Date: 20120418
  Receipt Date: 20120416
  Transmission Date: 20120825
  Serious: Yes (Death, Other)
  Sender: FDA-Public Use
  Company Number: PHEH2012US002121

PATIENT
  Sex: Male

DRUGS (4)
  1. PHENERGAN HCL [Concomitant]
     Dosage: PRN
  2. ZOMETA [Suspect]
     Dosage: 4 MG/5 ML, 1MONTH
  3. DURAGESIC-100 [Concomitant]
     Dosage: EVERY 3 DAYS
  4. PREDNISONE TAB [Concomitant]
     Dosage: EVERY OTHER DAY

REACTIONS (9)
  - PERFORMANCE STATUS DECREASED [None]
  - ASTHENIA [None]
  - LUNG CANCER METASTATIC [None]
  - NEOPLASM MALIGNANT [None]
  - CACHEXIA [None]
  - PAIN [None]
  - WHEEZING [None]
  - LUNG SQUAMOUS CELL CARCINOMA STAGE IV [None]
  - FATIGUE [None]
